FAERS Safety Report 9799772 (Version 2)
Quarter: 2014Q1

REPORT INFORMATION
  Report Type: Spontaneous
  Country: US (occurrence: US)
  Receive Date: 20140106
  Receipt Date: 20140106
  Transmission Date: 20141002
  Serious: No
  Sender: FDA-Public Use
  Company Number: US-GILEAD-2010-0032802

PATIENT
  Age: 71 Year
  Sex: Female
  Weight: 111.58 kg

DRUGS (18)
  1. LETAIRIS [Suspect]
     Indication: PULMONARY ARTERIAL HYPERTENSION
     Route: 048
     Dates: start: 20071008
  2. ZOCOR [Concomitant]
  3. DYAZIDE [Concomitant]
  4. NORVASC [Concomitant]
  5. LASIX [Concomitant]
  6. PRILOSEC OTC [Concomitant]
  7. HYDROCODONE/ACETAMINOPHEN [Concomitant]
  8. LORTAB [Concomitant]
  9. EXCEDRIN ES [Concomitant]
  10. FLUOXETINE [Concomitant]
  11. PROBIOTIC COMPLEX [Concomitant]
  12. POTASSIUM CHLORIDE [Concomitant]
  13. OMEGA 3 [Concomitant]
  14. OYST CAL D [Concomitant]
  15. IRON [Concomitant]
  16. VITAMIN C [Concomitant]
  17. MULTIPLE MINERALS [Concomitant]
  18. DAILY VITE [Concomitant]

REACTIONS (1)
  - Local swelling [Unknown]
